FAERS Safety Report 6104319-8 (Version None)
Quarter: 2009Q1

REPORT INFORMATION
  Report Type: 
  Country: None (occurrence: None)
  Receive Date: 20090305
  Receipt Date: 20090303
  Transmission Date: 20090719
  Serious: Yes (Hospitalization)
  Sender: FDA-Public Use
  Company Number: US-GILEAD-2009-0020461

PATIENT
  Sex: Female
  Weight: 88.53 kg

DRUGS (20)
  1. LETAIRIS [Suspect]
     Indication: PULMONARY ARTERIAL HYPERTENSION
     Route: 048
     Dates: start: 20081106
  2. VENTAVIS [Concomitant]
  3. VIAGRA [Concomitant]
  4. DILTIAZEM [Concomitant]
  5. OXYGEN [Concomitant]
  6. WARFARIN SODIUM [Concomitant]
  7. METOLAZONE [Concomitant]
  8. ASPIRIN [Concomitant]
  9. FUROSEMIDE [Concomitant]
  10. SPIRONOLACTONE [Concomitant]
  11. LORAZEPAM [Concomitant]
  12. BENAZEPRIL HYDROCHLORIDE [Concomitant]
  13. HYDROCODONE BITARTRATE + ACETAMINOPHEN [Concomitant]
  14. LUNESTA [Concomitant]
  15. PRILOSEC OTC [Concomitant]
  16. RHINOCORT [Concomitant]
  17. MAGNESIUM DR [Concomitant]
  18. FISH OIL [Concomitant]
  19. POTASSIUM CHLORIDE [Concomitant]
  20. CENTRUM SILVER [Concomitant]

REACTIONS (1)
  - PLEURAL EFFUSION [None]
